FAERS Safety Report 15482093 (Version 1)
Quarter: 2018Q4

REPORT INFORMATION
  Report Type: Spontaneous
  Country: US (occurrence: US)
  Receive Date: 20181003
  Receipt Date: 20181003
  Transmission Date: 20190205
  Serious: Yes (Hospitalization)
  Sender: FDA-Public Use
  Company Number: None

PATIENT
  Age: 57 Year
  Sex: Female

DRUGS (3)
  1. HARVONI [Suspect]
     Active Substance: LEDIPASVIR\SOFOSBUVIR
     Indication: HEPATITIS C
     Dosage: ?          OTHER DOSE:90- 400 MG;?
     Route: 048
     Dates: start: 20180906
  2. GABAPENTIN. [Concomitant]
     Active Substance: GABAPENTIN
  3. NITROFURANTOIN ANHYDROUS [Concomitant]

REACTIONS (2)
  - Pancreatic mass [None]
  - Pain [None]

NARRATIVE: CASE EVENT DATE: 20181001
